FAERS Safety Report 16288504 (Version 1)
Quarter: 2019Q2

REPORT INFORMATION
  Report Type: Spontaneous
  Country: HR (occurrence: HR)
  Receive Date: 20190509
  Receipt Date: 20190509
  Transmission Date: 20190711
  Serious: Yes (Other)
  Sender: FDA-Public Use
  Company Number: HR-009507513-1905HRV000804

PATIENT
  Age: 64 Year
  Sex: Male
  Weight: 88 kg

DRUGS (1)
  1. KEYTRUDA [Suspect]
     Active Substance: PEMBROLIZUMAB
     Indication: LUNG ADENOCARCINOMA
     Dosage: 200 MG
     Route: 042
     Dates: start: 20180727, end: 20181023

REACTIONS (8)
  - Renal impairment [Recovering/Resolving]
  - Swelling face [Recovering/Resolving]
  - Rhabdomyolysis [Recovering/Resolving]
  - Myositis [Recovering/Resolving]
  - Myalgia [Recovering/Resolving]
  - Hypothyroidism [Recovering/Resolving]
  - Blood creatinine increased [Recovering/Resolving]
  - Oedema peripheral [Recovering/Resolving]

NARRATIVE: CASE EVENT DATE: 2018
